FAERS Safety Report 20761821 (Version 2)
Quarter: 2025Q1

REPORT INFORMATION
  Report Type: Spontaneous
  Country: TH (occurrence: TH)
  Receive Date: 20220428
  Receipt Date: 20250203
  Transmission Date: 20250408
  Serious: Yes (Death, Hospitalization, Other)
  Sender: ASTELLAS
  Company Number: TH-ASTELLAS-2022US015623

PATIENT
  Age: 77 Year
  Sex: Male

DRUGS (1)
  1. XTANDI [Suspect]
     Active Substance: ENZALUTAMIDE
     Indication: Hormone-refractory prostate cancer
     Dosage: THE PATIENT TOOK XTANDI 160 MG PER DAY ONCE DAILY
     Route: 048

REACTIONS (2)
  - Malignant neoplasm progression [Fatal]
  - COVID-19 [Fatal]
